FAERS Safety Report 24397915 (Version 1)
Quarter: 2024Q4

REPORT INFORMATION
  Report Type: Spontaneous
  Country: US (occurrence: US)
  Receive Date: 20241004
  Receipt Date: 20241004
  Transmission Date: 20250115
  Serious: No
  Sender: PFIZER
  Company Number: US-PFIZER INC-202400268505

PATIENT
  Age: 78 Year
  Sex: Female

DRUGS (1)
  1. PREMARIN [Suspect]
     Active Substance: ESTROGENS, CONJUGATED
     Indication: Irritable bowel syndrome
     Dosage: UNK

REACTIONS (5)
  - Malaise [Unknown]
  - Drug ineffective [Unknown]
  - Nausea [Unknown]
  - Nasopharyngitis [Unknown]
  - Off label use [Unknown]
